FAERS Safety Report 10524418 (Version 2)
Quarter: 2014Q4

REPORT INFORMATION
  Report Type: Spontaneous
  Country: US (occurrence: US)
  Receive Date: 20141017
  Receipt Date: 20141121
  Transmission Date: 20150528
  Serious: No
  Sender: FDA-Public Use
  Company Number: US-BAYER-2014-153743

PATIENT
  Age: 36 Year
  Sex: Female

DRUGS (1)
  1. SKYLA [Suspect]
     Active Substance: LEVONORGESTREL
     Indication: CONTRACEPTION
     Dosage: 13.5 MG, CONT
     Route: 015
     Dates: start: 201409, end: 201409

REACTIONS (3)
  - Hypersensitivity [Recovered/Resolved]
  - Urticaria [Recovering/Resolving]
  - Rash [None]

NARRATIVE: CASE EVENT DATE: 201409
